FAERS Safety Report 5512457-3 (Version None)
Quarter: 2007Q4

REPORT INFORMATION
  Report Type: 
  Country: None (occurrence: None)
  Receive Date: 20071112
  Receipt Date: 20070215
  Transmission Date: 20080405
  Serious: No
  Sender: FDA-Public Use
  Company Number: A0639720A

PATIENT
  Age: 45 Year
  Sex: Female

DRUGS (10)
  1. AVANDAMET [Suspect]
     Dosage: 1TAB TWICE PER DAY
     Route: 048
  2. EFFEXOR [Concomitant]
  3. SPIRONOLACTONE [Concomitant]
  4. TOPROL-XL [Concomitant]
  5. LOPRESSOR [Concomitant]
  6. THYROID TAB [Concomitant]
  7. PRILOSEC [Concomitant]
  8. UNSPECIFIED MEDICATION [Concomitant]
     Indication: URINARY INCONTINENCE
  9. LASIX [Concomitant]
  10. POTASSIUM CHLORIDE [Concomitant]

REACTIONS (2)
  - OEDEMA [None]
  - WEIGHT DECREASED [None]
